FAERS Safety Report 18485767 (Version 1)
Quarter: 2020Q4

REPORT INFORMATION
  Report Type: Report from Study
  Country: US (occurrence: US)
  Receive Date: 20201110
  Receipt Date: 20201110
  Transmission Date: 20210114
  Serious: Yes (Hospitalization, Other)
  Sender: FDA-Public Use
  Company Number: US-BAYER-2020-239849

PATIENT
  Age: 66 Year
  Sex: Male

DRUGS (1)
  1. STIVARGA [Suspect]
     Active Substance: REGORAFENIB
     Indication: COLON CANCER
     Dosage: 160 MG, QD FOR 21 DAYS ON, 7 DAYS OFF
     Route: 048
     Dates: start: 20201006, end: 202010

REACTIONS (6)
  - Urinary tract infection [Not Recovered/Not Resolved]
  - Fatigue [Unknown]
  - Blood pressure increased [Recovering/Resolving]
  - Pyrexia [Recovered/Resolved]
  - Dehydration [Recovered/Resolved]
  - Weight decreased [Unknown]

NARRATIVE: CASE EVENT DATE: 202010
